FAERS Safety Report 19189171 (Version 1)
Quarter: 2021Q2

REPORT INFORMATION
  Report Type: Spontaneous
  Country: US (occurrence: US)
  Receive Date: 20210427
  Receipt Date: 20210427
  Transmission Date: 20210717
  Serious: Yes (Hospitalization)
  Sender: FDA-Public Use
  Company Number: None

PATIENT
  Age: 35 Year
  Sex: Female

DRUGS (1)
  1. THC BUTTERSCOTCH CHOCOLATE [DELTA 8 THC] [Suspect]
     Active Substance: .DELTA.8-TETRAHYDROCANNABINOL\HERBALS
     Indication: SUBSTANCE USE

REACTIONS (3)
  - Seizure [None]
  - Feeling abnormal [None]
  - Loss of consciousness [None]

NARRATIVE: CASE EVENT DATE: 20210329
